FAERS Safety Report 18732886 (Version 1)
Quarter: 2021Q1

REPORT INFORMATION
  Report Type: Spontaneous
  Country: US (occurrence: US)
  Receive Date: 20210113
  Receipt Date: 20210113
  Transmission Date: 20210419
  Serious: Yes (Death, Life-Threatening, Hospitalization, Other)
  Sender: FDA-Public Use
  Company Number: US-HIKMA PHARMACEUTICALS USA INC.-US-H14001-21-53296

PATIENT
  Age: 76 Year
  Sex: Female

DRUGS (1)
  1. METHYLPREDNISOLONE. [Suspect]
     Active Substance: METHYLPREDNISOLONE
     Indication: PRODUCT USED FOR UNKNOWN INDICATION
     Route: 042

REACTIONS (6)
  - Hypotension [Recovering/Resolving]
  - Multiple organ dysfunction syndrome [Fatal]
  - Tumour lysis syndrome [Unknown]
  - Chronic lymphocytic leukaemia [Unknown]
  - Lactic acidosis [Recovering/Resolving]
  - Acute respiratory failure [Unknown]
